FAERS Safety Report 18694360 (Version 1)
Quarter: 2021Q1

REPORT INFORMATION
  Report Type: Spontaneous
  Country: US (occurrence: US)
  Receive Date: 20210104
  Receipt Date: 20210104
  Transmission Date: 20210419
  Serious: Yes (Hospitalization)
  Sender: FDA-Public Use
  Company Number: US-MYLANLABS-2020M1106308

PATIENT
  Age: 22 Year
  Sex: Male

DRUGS (3)
  1. SPIRONOLACTONE. [Suspect]
     Active Substance: SPIRONOLACTONE
     Dosage: 25 MILLIGRAM, BID
     Route: 065
  2. SPIRONOLACTONE. [Suspect]
     Active Substance: SPIRONOLACTONE
     Indication: HORMONE THERAPY
     Dosage: 50 MILLIGRAM, BID
     Route: 065
  3. OESTROGEN(DIETHYLSTILBESTROL) [Suspect]
     Active Substance: DIETHYLSTILBESTROL
     Indication: HORMONE THERAPY
     Dosage: UNK
     Route: 065

REACTIONS (6)
  - Generalised oedema [Recovering/Resolving]
  - Lupus nephritis [Recovering/Resolving]
  - Ascites [Recovering/Resolving]
  - Pleural effusion [Recovering/Resolving]
  - Off label use [Unknown]
  - Systemic lupus erythematosus [Recovering/Resolving]
